FAERS Safety Report 23332833 (Version 2)
Quarter: 2024Q1

REPORT INFORMATION
  Report Type: Spontaneous
  Country: BR (occurrence: BR)
  Receive Date: 20231222
  Receipt Date: 20240304
  Transmission Date: 20240410
  Serious: Yes (Hospitalization, Other)
  Sender: FDA-Public Use
  Company Number: BR-BRISTOL-MYERS SQUIBB COMPANY-2023-171544

PATIENT
  Age: 61 Year
  Sex: Male

DRUGS (6)
  1. REVLIMID [Suspect]
     Active Substance: LENALIDOMIDE
     Indication: Follicular lymphoma
     Dosage: DOSE : 25 MG;     1 CAPSULE DAY - FOR 21 DAYS
     Dates: start: 20221228, end: 20230101
  2. REVLIMID [Suspect]
     Active Substance: LENALIDOMIDE
     Dosage: REDUCED DOSE
     Dates: start: 20230320
  3. OMEPRAZOLE [Concomitant]
     Active Substance: OMEPRAZOLE
     Indication: Prophylaxis
     Dosage: 1 CP PER DAY
     Route: 048
     Dates: start: 20221111
  4. ACYCLOVIR [Concomitant]
     Active Substance: ACYCLOVIR
     Indication: Prophylaxis
     Dosage: 2 CP 12/12 HRS
     Route: 048
     Dates: start: 20221111
  5. BACTRIM [Concomitant]
     Active Substance: SULFAMETHOXAZOLE\TRIMETHOPRIM
     Indication: Prophylaxis
     Dosage: 400/180MG (1 CP 12/12 HRS)
     Route: 048
     Dates: start: 20221111
  6. ALLOPURINOL [Concomitant]
     Active Substance: ALLOPURINOL
     Indication: Prophylaxis
     Dosage: 2 CP PER DAY
     Route: 048
     Dates: start: 20221111

REACTIONS (9)
  - Pyrexia [Recovered/Resolved]
  - Abdominal distension [Unknown]
  - Headache [Recovering/Resolving]
  - Leukopenia [Unknown]
  - Thrombocytopenia [Unknown]
  - Splenomegaly [Recovering/Resolving]
  - Febrile neutropenia [Unknown]
  - Abdominal sepsis [Unknown]
  - Off label use [Unknown]

NARRATIVE: CASE EVENT DATE: 20221228
